FAERS Safety Report 10621995 (Version 1)
Quarter: 2014Q4

REPORT INFORMATION
  Report Type: Spontaneous
  Country: US (occurrence: None)
  Receive Date: 20141201
  Receipt Date: 20141201
  Transmission Date: 20150529
  Serious: Yes (Hospitalization)
  Sender: FDA-Public Use
  Company Number: None

PATIENT
  Age: 63 Year
  Sex: Male
  Weight: 55.5 kg

DRUGS (2)
  1. CARBOPLATIN. [Suspect]
     Active Substance: CARBOPLATIN
     Dates: start: 20141021
  2. DOCETAXEL. [Suspect]
     Active Substance: DOCETAXEL
     Dates: start: 20141021

REACTIONS (6)
  - Vomiting [None]
  - Hyponatraemia [None]
  - Abdominal pain [None]
  - Anaemia [None]
  - Nausea [None]
  - Tracheobronchitis [None]

NARRATIVE: CASE EVENT DATE: 20141115
